FAERS Safety Report 14719604 (Version 1)
Quarter: 2018Q2

REPORT INFORMATION
  Report Type: Spontaneous
  Country: US (occurrence: US)
  Receive Date: 20180405
  Receipt Date: 20180405
  Transmission Date: 20180711
  Serious: Yes (Hospitalization, Other)
  Sender: FDA-Public Use
  Company Number: US-WEST-WARD PHARMACEUTICALS CORP.-US-H14001-18-02485

PATIENT
  Age: 83 Year
  Sex: Male

DRUGS (1)
  1. PHENYTOIN. [Suspect]
     Active Substance: PHENYTOIN
     Indication: PRODUCT USED FOR UNKNOWN INDICATION
     Route: 065

REACTIONS (7)
  - Upper gastrointestinal haemorrhage [Unknown]
  - Dermatitis bullous [Unknown]
  - Drug hypersensitivity [Unknown]
  - Oesophageal ulcer [Unknown]
  - Rash generalised [Recovering/Resolving]
  - Swelling face [Unknown]
  - Oesophagitis [Unknown]
